FAERS Safety Report 4481846-0 (Version None)
Quarter: 2004Q3

REPORT INFORMATION
  Report Type: 
  Country: None (occurrence: None)
  Receive Date: 20040921
  Receipt Date: 20040921
  Transmission Date: 20050211
  Serious: Yes (Other)
  Sender: FDA-Public Use
  Company Number: 163-20785-03050363

PATIENT
  Age: 26 Year
  Sex: Male

DRUGS (3)
  1. THALOMID [Suspect]
     Dosage: SEE IMAGE
     Route: 048
     Dates: start: 20030103, end: 20030117
  2. THALOMID [Suspect]
     Dosage: SEE IMAGE
     Route: 048
     Dates: start: 20030118, end: 20030520
  3. FLOMAX [Suspect]
     Indication: MALIGNANT HISTIOCYTOSIS
     Dosage: ORAL
     Route: 048
     Dates: start: 20030301, end: 20030325

REACTIONS (5)
  - NEUTROPENIA [None]
  - PALPITATIONS [None]
  - PARAESTHESIA [None]
  - PROSTATITIS [None]
  - WHITE BLOOD CELL COUNT DECREASED [None]
